FAERS Safety Report 15096668 (Version 3)
Quarter: 2018Q4

REPORT INFORMATION
  Report Type: Spontaneous
  Country: GB (occurrence: GB)
  Receive Date: 20180702
  Receipt Date: 20181207
  Transmission Date: 20190204
  Serious: Yes (Death, Other)
  Sender: FDA-Public Use
  Company Number: GB-VELOXIS PHARMACEUTICALS, INC.-2018VELGB1004

PATIENT
  Age: 76 Year
  Sex: Male
  Weight: 69 kg

DRUGS (5)
  1. CLARITHROMYCIN. [Interacting]
     Active Substance: CLARITHROMYCIN
     Indication: LOWER RESPIRATORY TRACT INFECTION
     Dosage: 500 MG, BID
     Route: 042
     Dates: start: 20180127, end: 20180131
  2. ADOPORT [Suspect]
     Active Substance: TACROLIMUS
     Indication: RENAL TRANSPLANT
     Dosage: 15 MG, BID
     Route: 048
  3. PREDNISOLONE. [Concomitant]
     Active Substance: PREDNISOLONE
     Indication: PRODUCT USED FOR UNKNOWN INDICATION
     Dosage: UNK
     Route: 065
  4. CLARITHROMYCIN. [Interacting]
     Active Substance: CLARITHROMYCIN
     Indication: PNEUMONIA
  5. ENVARSUS XR [Suspect]
     Active Substance: TACROLIMUS
     Indication: PROPHYLAXIS AGAINST TRANSPLANT REJECTION
     Dosage: UNK
     Route: 065

REACTIONS (7)
  - Oesophageal perforation [Fatal]
  - Acute kidney injury [Fatal]
  - Drug interaction [Fatal]
  - Toxicity to various agents [Unknown]
  - Oesophageal carcinoma [Fatal]
  - Immunosuppressant drug level increased [Fatal]
  - Sepsis [Fatal]

NARRATIVE: CASE EVENT DATE: 20180127
